FAERS Safety Report 6967997-7 (Version None)
Quarter: 2010Q3

REPORT INFORMATION
  Report Type: 
  Country: None (occurrence: None)
  Receive Date: 20100907
  Receipt Date: 20100901
  Transmission Date: 20110219
  Serious: Yes (Death)
  Sender: FDA-Public Use
  Company Number: A0878939A

PATIENT
  Age: 62 Year
  Sex: Male

DRUGS (3)
  1. LOVAZA [Suspect]
     Dosage: 1CAPL TWICE PER DAY
     Route: 048
  2. ANTI-CHOLESTEROL MEDICATION [Concomitant]
  3. BLOOD PRESSURE MEDICATION [Concomitant]

REACTIONS (1)
  - DEATH [None]
